FAERS Safety Report 10395275 (Version 4)
Quarter: 2014Q4

REPORT INFORMATION
  Report Type: Spontaneous
  Country: US (occurrence: US)
  Receive Date: 20140820
  Receipt Date: 20141110
  Transmission Date: 20150528
  Serious: Yes (Other)
  Sender: FDA-Public Use
  Company Number: PHEH2014US016344

PATIENT
  Age: 65 Year
  Sex: Male
  Weight: 81.64 kg

DRUGS (8)
  1. COSUDEX [Concomitant]
     Active Substance: BICALUTAMIDE
     Indication: PROSTATE CANCER
     Dosage: 50 MG, QD
     Route: 048
     Dates: start: 200603
  2. ZOMETA [Suspect]
     Active Substance: ZOLEDRONIC ACID
     Indication: OSTEOPOROSIS
     Dosage: UNK
  3. LEXAPRO [Concomitant]
     Active Substance: ESCITALOPRAM OXALATE
     Indication: PRODUCT USED FOR UNKNOWN INDICATION
     Dosage: 10 MG, QHS
     Route: 048
  4. ZOMETA [Suspect]
     Active Substance: ZOLEDRONIC ACID
     Indication: PROSTATE CANCER
     Dosage: 04 MG, ONCE EVERY 2 MONTHS THEN 3,4,6 MONTHS
     Route: 042
     Dates: start: 200509, end: 20110714
  5. OMEPRAZOLE. [Concomitant]
     Active Substance: OMEPRAZOLE
     Indication: PRODUCT USED FOR UNKNOWN INDICATION
     Dosage: 20 MG, QD
     Route: 065
  6. ZOMETA [Suspect]
     Active Substance: ZOLEDRONIC ACID
     Indication: OFF LABEL USE
  7. WELLBUTRIN [Concomitant]
     Active Substance: BUPROPION HYDROCHLORIDE
     Indication: PRODUCT USED FOR UNKNOWN INDICATION
     Dosage: 200 MG, BID
     Route: 065
  8. TAMOXIFEN [Concomitant]
     Active Substance: TAMOXIFEN
     Indication: PRODUCT USED FOR UNKNOWN INDICATION
     Dosage: 20 MG, QD
     Route: 048
     Dates: start: 200603

REACTIONS (14)
  - Bone deformity [Unknown]
  - Oncologic complication [Unknown]
  - Jaw disorder [Not Recovered/Not Resolved]
  - Purulent discharge [Unknown]
  - Pain [Unknown]
  - Exposed bone in jaw [Not Recovered/Not Resolved]
  - Osteomyelitis [Unknown]
  - Soft tissue infection [Unknown]
  - Gingival disorder [Not Recovered/Not Resolved]
  - Osteosclerosis [Not Recovered/Not Resolved]
  - Toothache [Unknown]
  - Pain in jaw [Not Recovered/Not Resolved]
  - Osteonecrosis of jaw [Not Recovered/Not Resolved]
  - Bone disorder [Unknown]

NARRATIVE: CASE EVENT DATE: 20110324
